FAERS Safety Report 6886441-1 (Version None)
Quarter: 2010Q3

REPORT INFORMATION
  Report Type: 
  Country: None (occurrence: None)
  Receive Date: 20100729
  Receipt Date: 20091130
  Transmission Date: 20110219
  Serious: Yes (Other)
  Sender: FDA-Public Use
  Company Number: US-PFIZER INC-2008003961

PATIENT
  Sex: Female

DRUGS (9)
  1. CELEBREX [Suspect]
     Indication: PAIN
     Dosage: 200 MG, 1X/DAY
     Route: 048
     Dates: start: 20030101
  2. CELEBREX [Suspect]
     Indication: INFLAMMATION
  3. CELEBREX [Suspect]
     Indication: ARTHROPATHY
  4. LYRICA [Suspect]
     Indication: NERVOUS SYSTEM DISORDER
  5. AMBIEN [Concomitant]
     Indication: INSOMNIA
     Dosage: UNK
  6. XANAX [Concomitant]
     Dosage: UNK
     Dates: start: 20060901
  7. SOMA [Concomitant]
     Dosage: UNK
  8. HYDROMORPHONE [Concomitant]
     Dosage: UNK
  9. EFFEXOR [Concomitant]
     Dosage: 75 MG, 1X/DAY
     Dates: start: 20090401

REACTIONS (2)
  - BASEDOW'S DISEASE [None]
  - HYPERTENSION [None]
